FAERS Safety Report 9006765 (Version 1)
Quarter: 2013Q1

REPORT INFORMATION
  Report Type: Report from Study
  Country: US (occurrence: US)
  Receive Date: 20130110
  Receipt Date: 20130110
  Transmission Date: 20140127
  Serious: Yes (Hospitalization)
  Sender: FDA-Public Use
  Company Number: US-ROCHE-1175186

PATIENT
  Age: 53 None
  Sex: Male

DRUGS (12)
  1. MYCOPHENOLATE MOFETIL [Suspect]
     Indication: LIVER TRANSPLANT
     Route: 065
     Dates: start: 201206
  2. HUMIRA [Suspect]
     Indication: CROHN^S DISEASE
     Route: 065
     Dates: start: 2010, end: 201208
  3. PREDNISONE [Concomitant]
  4. CODEINE [Concomitant]
  5. RECLAST [Concomitant]
  6. BUSPIRONE [Concomitant]
  7. TACROLIMUS [Concomitant]
  8. LIALDA [Concomitant]
  9. CITRACAL [Concomitant]
  10. MAGNESIUM OXIDE [Concomitant]
  11. ENTOCORT [Concomitant]
  12. XIFAXAN [Concomitant]

REACTIONS (24)
  - Urine output decreased [Recovered/Resolved]
  - Gastrointestinal disorder [Recovered/Resolved]
  - Pneumatosis [Recovered/Resolved]
  - Faeces discoloured [Unknown]
  - Diarrhoea [Recovered/Resolved]
  - Malnutrition [Unknown]
  - Flatulence [Recovered/Resolved]
  - Gastrointestinal hypermotility [Unknown]
  - Gastric disorder [Unknown]
  - Failure to thrive [Recovered/Resolved]
  - Diarrhoea [Unknown]
  - Dehydration [Recovered/Resolved]
  - Crohn^s disease [Recovered/Resolved]
  - Abdominal pain [Recovered/Resolved]
  - Diarrhoea [Unknown]
  - Dehydration [Unknown]
  - Colitis [Unknown]
  - Drug ineffective [Unknown]
  - Abdominal distension [Recovered/Resolved]
  - Viral infection [Unknown]
  - Gastrointestinal infection [Unknown]
  - Dyspepsia [Recovered/Resolved]
  - Enteritis [Unknown]
  - Animal bite [Recovered/Resolved]
